FAERS Safety Report 9068471 (Version 1)
Quarter: 2013Q1

REPORT INFORMATION
  Report Type: Spontaneous
  Country: US (occurrence: None)
  Receive Date: 20130208
  Receipt Date: 20130208
  Transmission Date: 20140127
  Serious: Yes (Other)
  Sender: FDA-Public Use
  Company Number: None

PATIENT
  Age: 63 Year
  Sex: Female
  Weight: 74.84 kg

DRUGS (2)
  1. CLINDAMYCIN [Suspect]
     Indication: TOOTH INFECTION
     Route: 048
     Dates: start: 20130206, end: 20130208
  2. CLINDAMYCIN [Suspect]
     Indication: PAIN IN JAW
     Route: 048
     Dates: start: 20130206, end: 20130208

REACTIONS (4)
  - Tinnitus [None]
  - Toothache [None]
  - Sinus headache [None]
  - Peripheral pulse decreased [None]
